FAERS Safety Report 25040519 (Version 3)
Quarter: 2025Q3

REPORT INFORMATION
  Report Type: Spontaneous
  Country: US (occurrence: US)
  Receive Date: 20250305
  Receipt Date: 20250708
  Transmission Date: 20251021
  Serious: No
  Sender: SUNOVION
  Company Number: US-SMPA-2025SPA001390AA

PATIENT

DRUGS (8)
  1. ORGOVYX [Suspect]
     Active Substance: RELUGOLIX
     Indication: Prostate cancer
     Dosage: 360 MG, SINGLE
     Route: 048
     Dates: start: 202501, end: 202501
  2. ORGOVYX [Suspect]
     Active Substance: RELUGOLIX
     Dosage: 120 MG, QD
     Route: 048
     Dates: start: 202501
  3. VALIUM [Concomitant]
     Active Substance: DIAZEPAM
     Route: 065
  4. SILDENAFIL CITRATE [Concomitant]
     Active Substance: SILDENAFIL CITRATE
     Route: 065
  5. CIALIS [Concomitant]
     Active Substance: TADALAFIL
     Route: 065
  6. FLOMAX [Concomitant]
     Active Substance: TAMSULOSIN HYDROCHLORIDE
     Route: 065
  7. MELOXICAM [Concomitant]
     Active Substance: MELOXICAM
     Route: 065
  8. PHENAZOPYRIDINE HCL [Concomitant]
     Active Substance: PHENAZOPYRIDINE HYDROCHLORIDE
     Route: 065

REACTIONS (8)
  - Pruritus [Unknown]
  - Feeling abnormal [Unknown]
  - Dry skin [Unknown]
  - Arthralgia [Unknown]
  - Constipation [Unknown]
  - Hot flush [Unknown]
  - Loss of libido [Unknown]
  - Accidental overdose [Unknown]
